FAERS Safety Report 8589957 (Version 3)
Quarter: 2012Q4

REPORT INFORMATION
  Report Type: 
  Country: BR (occurrence: BR)
  Receive Date: 20120601
  Receipt Date: 20121227
  Transmission Date: 20130627
  Serious: Yes (Other)
  Sender: FDA-Public Use
  Company Number: BR-BAYER-2012-053392

PATIENT
  Age: 24 Year
  Sex: Female

DRUGS (3)
  1. BETAFERON [Suspect]
     Indication: MULTIPLE SCLEROSIS
     Dosage: 1 ml, QOD
     Route: 058
     Dates: start: 20110808
  2. ETHINYLESTRADIOL [Concomitant]
     Indication: CONTRACEPTION
     Dosage: UNK
     Route: 048
     Dates: start: 20120529
  3. CYPROTERONE [Concomitant]
     Indication: CONTRACEPTION
     Dosage: UNK
     Route: 048
     Dates: start: 20120529

REACTIONS (8)
  - Blood testosterone increased [Unknown]
  - Dehydroepiandrosterone increased [Unknown]
  - Anaemia [Unknown]
  - Feeling abnormal [None]
  - Somnolence [Not Recovered/Not Resolved]
  - Androgens abnormal [Unknown]
  - Blood triglycerides increased [Unknown]
  - Lipoprotein (a) abnormal [Unknown]
